FAERS Safety Report 14403925 (Version 2)
Quarter: 2018Q3

REPORT INFORMATION
  Report Type: Spontaneous
  Country: SE (occurrence: SE)
  Receive Date: 20180117
  Receipt Date: 20180719
  Transmission Date: 20181010
  Serious: Yes (Hospitalization)
  Sender: FDA-Public Use
  Company Number: SE-TEVA-2018-SE-846732

PATIENT
  Age: 78 Year
  Sex: Female

DRUGS (9)
  1. KALCIPOS [Concomitant]
     Active Substance: CALCIUM CARBONATE
  2. OMEPRAZOL ACTAVIS 20 MG ENTEROKAPSEL, H?RD [Concomitant]
  3. TERBINAFINE. [Suspect]
     Active Substance: TERBINAFINE
     Indication: FUNGAL INFECTION
     Route: 003
     Dates: start: 20170811, end: 20171009
  4. SIMVASTATIN. [Concomitant]
     Active Substance: SIMVASTATIN
  5. AZATHIOPRINE. [Concomitant]
     Active Substance: AZATHIOPRINE
  6. RETACRIT [Concomitant]
     Active Substance: EPOETIN ALFA-EPBX
  7. CANDESARTAN. [Concomitant]
     Active Substance: CANDESARTAN
  8. ZOPICLONE [Concomitant]
     Active Substance: ZOPICLONE
  9. ETALPHA [Concomitant]
     Active Substance: ALFACALCIDOL

REACTIONS (5)
  - Weight decreased [Recovered/Resolved]
  - Leukopenia [Recovered/Resolved]
  - Malaise [Recovered/Resolved]
  - Anaemia [Recovered/Resolved]
  - Bone marrow failure [Recovered/Resolved]

NARRATIVE: CASE EVENT DATE: 201709
